FAERS Safety Report 7296802-7 (Version None)
Quarter: 2011Q1

REPORT INFORMATION
  Report Type: 
  Country: None (occurrence: None)
  Receive Date: 20110216
  Receipt Date: 20110208
  Transmission Date: 20110831
  Serious: Yes (Other)
  Sender: FDA-Public Use
  Company Number: B0699993A

PATIENT
  Age: 63 Year
  Sex: Female

DRUGS (1)
  1. AUGMENTIN [Suspect]
     Route: 048

REACTIONS (5)
  - DIARRHOEA [None]
  - RECTAL HAEMORRHAGE [None]
  - PAIN [None]
  - COLITIS [None]
  - BURNING SENSATION [None]
